FAERS Safety Report 21130141 (Version 1)
Quarter: 2022Q3

REPORT INFORMATION
  Report Type: Report from Study
  Country: RU (occurrence: None)
  Receive Date: 20220726
  Receipt Date: 20220726
  Transmission Date: 20221026
  Serious: Yes (Other)
  Sender: FDA-Public Use
  Company Number: RU-ROCHE-2549662

PATIENT
  Age: 67 Year
  Sex: Female
  Weight: 65.1 kg

DRUGS (11)
  1. FARICIMAB [Suspect]
     Active Substance: FARICIMAB
     Indication: Neovascular age-related macular degeneration
     Dosage: MOST RECENT DOSE PRIOR TO AE AND SAE ONSET: 27/JAN/2020 AT 13:02
     Route: 050
     Dates: start: 20190723
  2. PLACEBO [Suspect]
     Active Substance: UNSPECIFIED INGREDIENT
     Indication: Neovascular age-related macular degeneration
     Dosage: MOST RECENT DOSE PRIOR TO AE AND SAE ONSET: 27/JAN/2020 AT 13:02
     Route: 050
     Dates: start: 20190723
  3. AFLIBERCEPT [Suspect]
     Active Substance: AFLIBERCEPT
     Indication: Neovascular age-related macular degeneration
     Dosage: ON 27/JAN/2020, MOST RECENT DOSE (2 MG) WAS GIVEN AT 13:04?SUBSEQUENT DOSES: 31/MAR/2020 AND 28/APR/
     Route: 050
     Dates: start: 20190723
  4. DORZOPT PLUS [Concomitant]
     Indication: Intraocular pressure increased
     Route: 047
     Dates: start: 20200113
  5. NOLIPREL [Concomitant]
     Indication: Hypertension
     Route: 048
  6. BISOPROLOL FUMARATE [Concomitant]
     Active Substance: BISOPROLOL FUMARATE
     Indication: Hypertension
     Route: 048
  7. BRIMONIDINE TARTRATE [Concomitant]
     Active Substance: BRIMONIDINE TARTRATE
     Indication: Glaucoma
     Route: 047
     Dates: start: 20200212
  8. CIPROFLOXACIN [Concomitant]
     Active Substance: CIPROFLOXACIN
     Indication: Urinary tract infection
     Route: 048
     Dates: start: 20200310, end: 20200316
  9. HERBALS [Concomitant]
     Active Substance: HERBALS
     Indication: Urinary tract infection
     Route: 048
     Dates: start: 20200317, end: 20200331
  10. MELOXICAM [Concomitant]
     Active Substance: MELOXICAM
     Indication: Urinary tract infection
     Route: 048
     Dates: start: 20200310, end: 20200319
  11. ROSUVASTATIN [Concomitant]
     Active Substance: ROSUVASTATIN
     Indication: Hypercholesterolaemia
     Route: 048
     Dates: start: 20200310

REACTIONS (2)
  - Vitritis [Recovered/Resolved]
  - Toxic anterior segment syndrome [Unknown]

NARRATIVE: CASE EVENT DATE: 20200212
